FAERS Safety Report 4339175-1 (Version None)
Quarter: 2004Q2

REPORT INFORMATION
  Report Type: 
  Country: None (occurrence: None)
  Receive Date: 20040414
  Receipt Date: 20040414
  Transmission Date: 20050107
  Serious: Yes (Death)
  Sender: FDA-Public Use
  Company Number: None

PATIENT
  Sex: Female
  Weight: 3 kg

DRUGS (3)
  1. ORFADIN [Suspect]
     Dosage: 1 MG PO Q 12 HR
     Route: 048
     Dates: start: 20031228, end: 20040124
  2. TYROSINE-FREE AMINOACID SOLUTION [Concomitant]
  3. FACTOR VII [Concomitant]

REACTIONS (9)
  - COAGULATION DISORDER NEONATAL [None]
  - FLUID OVERLOAD [None]
  - GENERALISED OEDEMA [None]
  - HEPATORENAL SYNDROME [None]
  - NEONATAL DISORDER [None]
  - NEONATAL HYPOTENSION [None]
  - NEONATAL MULTI-ORGAN FAILURE [None]
  - NEONATAL RESPIRATORY FAILURE [None]
  - SEPSIS NEONATAL [None]
